FAERS Safety Report 12608703 (Version 1)
Quarter: 2016Q3

REPORT INFORMATION
  Report Type: Spontaneous
  Country: US (occurrence: US)
  Receive Date: 20160729
  Receipt Date: 20160729
  Transmission Date: 20161109
  Serious: No
  Sender: FDA-Public Use
  Company Number: US-AMNEAL PHARMACEUTICALS-2016AMN00411

PATIENT
  Age: 50 Year
  Sex: Female
  Weight: 68.27 kg

DRUGS (3)
  1. METFORMIN HYDROCHLORIDE. [Suspect]
     Active Substance: METFORMIN HYDROCHLORIDE
     Indication: DIABETES MELLITUS
     Dosage: 500 MG, 2X/DAY
     Route: 048
     Dates: start: 201301, end: 20150510
  2. LISINOPRIL. [Concomitant]
     Active Substance: LISINOPRIL
     Indication: BLOOD PRESSURE MEASUREMENT
  3. ZYRTEC [Concomitant]
     Active Substance: CETIRIZINE HYDROCHLORIDE

REACTIONS (9)
  - Asthenia [None]
  - Burning sensation [None]
  - Dysgeusia [None]
  - Dyspnoea [None]
  - Palpitations [None]
  - Chest discomfort [None]
  - Malaise [None]
  - Dizziness [None]
  - Skin exfoliation [None]

NARRATIVE: CASE EVENT DATE: 20150510
